FAERS Safety Report 17968777 (Version 2)
Quarter: 2020Q3

REPORT INFORMATION
  Report Type: Spontaneous
  Country: US (occurrence: US)
  Receive Date: 20200701
  Receipt Date: 20200728
  Transmission Date: 20201103
  Serious: No
  Sender: FDA-Public Use
  Company Number: US-SA-2020SA166881

PATIENT

DRUGS (5)
  1. TRIAMCINOLONE [Concomitant]
     Active Substance: TRIAMCINOLONE
     Dosage: RELIEF FOR THREE TO FOUR MONTHS AT TIME
  2. TRISENOX [Concomitant]
     Active Substance: ARSENIC TRIOXIDE
     Dosage: WORKED FOR HER IN THE PAST FOR UP TO 3 MONTHS
  3. METHOTREXATE. [Concomitant]
     Active Substance: METHOTREXATE
     Dosage: UNK
  4. DUPIXENT [Suspect]
     Active Substance: DUPILUMAB
     Indication: DERMATITIS ATOPIC
     Dosage: 300 MG, 1X
     Route: 058
     Dates: start: 20200227
  5. DUPIXENT [Suspect]
     Active Substance: DUPILUMAB
     Indication: DERMATITIS
     Dosage: 200 MG, QOW
     Route: 058
     Dates: start: 202003

REACTIONS (5)
  - Skin fissures [Unknown]
  - Drug ineffective [Unknown]
  - Pain [Unknown]
  - Pain of skin [Unknown]
  - Product use issue [Unknown]

NARRATIVE: CASE EVENT DATE: 2020
